FAERS Safety Report 15560201 (Version 1)
Quarter: 2018Q4

REPORT INFORMATION
  Report Type: Spontaneous
  Country: US (occurrence: US)
  Receive Date: 20181027
  Receipt Date: 20181027
  Transmission Date: 20190205
  Serious: Yes (Disabling)
  Sender: FDA-Public Use
  Company Number: None

PATIENT
  Age: 66 Year
  Sex: Female
  Weight: 103.5 kg

DRUGS (14)
  1. AMLODIPINE [Concomitant]
     Active Substance: AMLODIPINE BESYLATE
  2. DECOMPRESSION ACETATE [Concomitant]
  3. METFORMIN [Concomitant]
     Active Substance: METFORMIN HYDROCHLORIDE
  4. PROPOSED OCT [Concomitant]
  5. HYDROCORTISONE. [Concomitant]
     Active Substance: HYDROCORTISONE
  6. CENTRUM MULTI-VITAMIN [Concomitant]
  7. LOSARTAN. [Concomitant]
     Active Substance: LOSARTAN
  8. SIMVASTATIN. [Concomitant]
     Active Substance: SIMVASTATIN
  9. COMBIGAN [Suspect]
     Active Substance: BRIMONIDINE TARTRATE\TIMOLOL MALEATE
     Indication: GLAUCOMA
     Dosage: ?          QUANTITY:1 DROP(S);?
     Route: 047
     Dates: start: 20180718, end: 20181019
  10. L-THYROXINE [Concomitant]
     Active Substance: LEVOTHYROXINE
  11. OCUVITE EYE VITAMIN [Concomitant]
  12. ACYCLOVIR. [Concomitant]
     Active Substance: ACYCLOVIR
  13. VITAMIN D [Concomitant]
     Active Substance: CHOLECALCIFEROL
  14. VICTORS [Concomitant]

REACTIONS (5)
  - Eye swelling [None]
  - Eye pain [None]
  - Photophobia [None]
  - Eye inflammation [None]
  - Ocular hyperaemia [None]

NARRATIVE: CASE EVENT DATE: 20181016
